FAERS Safety Report 14016656 (Version 2)
Quarter: 2017Q4

REPORT INFORMATION
  Report Type: Report from Study
  Country: None (occurrence: UY)
  Receive Date: 20170927
  Receipt Date: 20171020
  Transmission Date: 20180321
  Serious: Yes (Hospitalization)
  Sender: FDA-Public Use
  Company Number: UY-ABBVIE-17S-168-2113962-00

PATIENT
  Age: 48 Year
  Sex: Female

DRUGS (1)
  1. VIEKIRA PAK [Suspect]
     Active Substance: DASABUVIR\OMBITASVIR\PARITAPREVIR\RITONAVIR
     Indication: HEPATITIS C
     Dosage: 3 VP IN THE MORNING AND 1 VP AT NIGHT. PATIENT FINISHED 12 WEEKS OF THERAPY.
     Route: 048
     Dates: start: 20170610, end: 20170831

REACTIONS (7)
  - Splenomegaly [Unknown]
  - Mesenteric vein thrombosis [Recovering/Resolving]
  - Hepatomegaly [Recovered/Resolved]
  - Portal vein thrombosis [Recovering/Resolving]
  - Nephrolithiasis [Unknown]
  - Swelling [Unknown]
  - Abdominal pain [Unknown]

NARRATIVE: CASE EVENT DATE: 2017
